FAERS Safety Report 24092834 (Version 1)
Quarter: 2024Q3

REPORT INFORMATION
  Report Type: Spontaneous
  Country: FR (occurrence: FR)
  Receive Date: 20240715
  Receipt Date: 20240715
  Transmission Date: 20241017
  Serious: Yes (Life-Threatening, Other)
  Sender: MYLAN
  Company Number: None

PATIENT
  Age: 23 Year
  Sex: Female
  Weight: 60 kg

DRUGS (9)
  1. VANCOMYCIN [Suspect]
     Active Substance: VANCOMYCIN
     Indication: Infection prophylaxis
     Dosage: 1 DOSAGE FORM, 1 TOTAL
     Route: 042
     Dates: start: 20210304, end: 20210304
  2. PROPOFOL [Concomitant]
     Active Substance: PROPOFOL
     Dosage: 1 DOSAGE FORM, 1 TOTAL
     Route: 042
     Dates: start: 20210304, end: 20210304
  3. DROPERIDOL [Concomitant]
     Active Substance: DROPERIDOL
     Dosage: 1 DOSAGE FORM, 1 TOTAL
     Route: 042
     Dates: start: 20210304, end: 20210304
  4. LIDOCAINE [Concomitant]
     Active Substance: LIDOCAINE
     Dosage: 1 DOSAGE FORM, 1 TOTAL
     Route: 042
     Dates: start: 20210304, end: 20210304
  5. DEXAMETHASONE [Concomitant]
     Active Substance: DEXAMETHASONE
     Dosage: 1 DOSAGE FORM, 1 TOTAL
     Route: 042
     Dates: start: 20210304, end: 20210304
  6. METRONIDAZOLE [Concomitant]
     Active Substance: METRONIDAZOLE
     Dosage: 1 DOSAGE FORM, 1 TOTAL
     Route: 042
     Dates: start: 20210304, end: 20210304
  7. CEFEPIME [Concomitant]
     Active Substance: CEFEPIME HYDROCHLORIDE
     Dosage: 1 DOSAGE FORM, 1 TOTAL
     Route: 042
     Dates: start: 20210304, end: 20210304
  8. ROCURONIUM BROMIDE [Concomitant]
     Active Substance: ROCURONIUM BROMIDE
     Dosage: 1 DOSAGE FORM, 1 TOTAL
     Route: 042
     Dates: start: 20210304, end: 20210304
  9. ROPIVACAINE HYDROCHLORIDE [Concomitant]
     Active Substance: ROPIVACAINE HYDROCHLORIDE
     Dosage: 1 DOSAGE FORM, 1 TOTAL
     Route: 042
     Dates: start: 20210304, end: 20210304

REACTIONS (1)
  - Anaphylactic shock [Recovered/Resolved]

NARRATIVE: CASE EVENT DATE: 20210304
